FAERS Safety Report 24255085 (Version 2)
Quarter: 2024Q3

REPORT INFORMATION
  Report Type: Spontaneous
  Country: US (occurrence: US)
  Receive Date: 20240827
  Receipt Date: 20240904
  Transmission Date: 20241016
  Serious: No
  Sender: ALEXION PHARMACEUTICALS
  Company Number: US-AstraZeneca-CH-00688806A

PATIENT
  Sex: Male

DRUGS (1)
  1. STRENSIQ [Suspect]
     Active Substance: ASFOTASE ALFA
     Indication: Hypophosphatasia
     Dosage: 25 MILLIGRAM, SIX TIMES/WEEK
     Route: 065
     Dates: start: 20230829

REACTIONS (1)
  - Skin atrophy [Unknown]

NARRATIVE: CASE EVENT DATE: 20240101
